FAERS Safety Report 6818637-9 (Version None)
Quarter: 2010Q3

REPORT INFORMATION
  Report Type: 
  Country: None (occurrence: None)
  Receive Date: 20100706
  Receipt Date: 20090223
  Transmission Date: 20110219
  Serious: No
  Sender: FDA-Public Use
  Company Number: US-PFIZER INC-2009153740

PATIENT
  Age: 67 Year
  Sex: Female

DRUGS (3)
  1. ZITHROMAX [Suspect]
     Dosage: UNK
  2. PEPCID AC [Interacting]
     Dosage: UNK
  3. BACTRIM [Interacting]

REACTIONS (4)
  - ABDOMINAL PAIN UPPER [None]
  - DRUG INTERACTION [None]
  - HEADACHE [None]
  - VOMITING [None]
